FAERS Safety Report 25813964 (Version 1)
Quarter: 2025Q3

REPORT INFORMATION
  Report Type: Spontaneous
  Country: US (occurrence: US)
  Receive Date: 20250917
  Receipt Date: 20250917
  Transmission Date: 20251021
  Serious: No
  Sender: ARDELYX
  Company Number: US-ARDELYX-2025ARDX005492

PATIENT

DRUGS (2)
  1. XPHOZAH [Suspect]
     Active Substance: TENAPANOR HYDROCHLORIDE
     Indication: Chronic kidney disease
     Route: 048
     Dates: start: 202507
  2. XPHOZAH [Suspect]
     Active Substance: TENAPANOR HYDROCHLORIDE
     Route: 048

REACTIONS (3)
  - Product use issue [Unknown]
  - Product distribution issue [Unknown]
  - Laboratory test abnormal [Unknown]
